FAERS Safety Report 5306134-1 (Version None)
Quarter: 2007Q2

REPORT INFORMATION
  Report Type: 
  Country: None (occurrence: None)
  Receive Date: 20070420
  Receipt Date: 20070420
  Transmission Date: 20071010
  Serious: Yes (Hospitalization)
  Sender: FDA-Public Use
  Company Number: None

PATIENT
  Age: 82 Year
  Sex: Female
  Weight: 63 kg

DRUGS (2)
  1. METFORMIN HCL [Suspect]
     Indication: DIABETES MELLITUS NON-INSULIN-DEPENDENT
     Dosage: 500MG BREAKFAST + SUPPER
  2. AMARYL [Suspect]

REACTIONS (4)
  - CONFUSIONAL STATE [None]
  - DISEASE RECURRENCE [None]
  - HYPOGLYCAEMIA [None]
  - URINARY TRACT INFECTION [None]
